FAERS Safety Report 8573234-2 (Version None)
Quarter: 2012Q3

REPORT INFORMATION
  Report Type: 
  Country: None (occurrence: None)
  Receive Date: 20120806
  Receipt Date: 20120801
  Transmission Date: 20120928
  Serious: Yes (Other)
  Sender: FDA-Public Use
  Company Number: NL-PFIZER INC-2012186455

PATIENT
  Age: 78 Year
  Sex: Female

DRUGS (6)
  1. ADALAT [Concomitant]
     Dosage: 30 MG, UNK
  2. SERETIDE [Concomitant]
     Indication: CHRONIC OBSTRUCTIVE PULMONARY DISEASE
     Dosage: 25/250 UNK, UNK
  3. CARBASALATE CALCIUM [Concomitant]
     Dosage: UNK
  4. HYDROCHLOROTHIAZIDE [Concomitant]
     Dosage: UNK
  5. LIPITOR [Suspect]
     Dosage: 10 MG, UNK
  6. PERSANTIN [Concomitant]
     Dosage: 200 MG, UNK

REACTIONS (2)
  - VISUAL ACUITY REDUCED [None]
  - CEREBROVASCULAR ACCIDENT [None]
